FAERS Safety Report 9277891 (Version 7)
Quarter: 2014Q4

REPORT INFORMATION
  Report Type: Report from Study
  Country: CA (occurrence: CA)
  Receive Date: 20130508
  Receipt Date: 20141120
  Transmission Date: 20150529
  Serious: Yes (Other)
  Sender: FDA-Public Use
  Company Number: PHHY2012CA056292

PATIENT
  Sex: Male

DRUGS (1)
  1. SANDOSTATIN LAR DEPOT [Suspect]
     Active Substance: OCTREOTIDE ACETATE
     Indication: NEUROENDOCRINE TUMOUR
     Dosage: 30 MG, EVERY 4 WEEKS/EVERY 28 DAYS
     Route: 030
     Dates: start: 20111006

REACTIONS (17)
  - Abdominal rigidity [Unknown]
  - Anxiety [Unknown]
  - Decreased appetite [Unknown]
  - Fungal skin infection [Unknown]
  - Alopecia [Unknown]
  - Nausea [Unknown]
  - Hypophagia [Unknown]
  - Renal impairment [Unknown]
  - Weight decreased [Unknown]
  - Hypoaesthesia [Unknown]
  - Erythema [Unknown]
  - Fatigue [Unknown]
  - Vomiting [Unknown]
  - Abdominal pain upper [Unknown]
  - Liver injury [Unknown]
  - Malaise [Unknown]
  - Peripheral swelling [Unknown]

NARRATIVE: CASE EVENT DATE: 2014
